FAERS Safety Report 4676512-2 (Version None)
Quarter: 2005Q2

REPORT INFORMATION
  Report Type: 
  Country: None (occurrence: None)
  Receive Date: 20050525
  Receipt Date: 20050517
  Transmission Date: 20051028
  Serious: Yes (Hospitalization)
  Sender: FDA-Public Use
  Company Number: 2005076284

PATIENT
  Sex: Female

DRUGS (2)
  1. LIPITOR [Suspect]
     Indication: ILL-DEFINED DISORDER
     Dosage: (10 MG), ORAL
     Route: 048
     Dates: start: 20050401
  2. METFORMIN HCL [Concomitant]

REACTIONS (3)
  - COUGH [None]
  - INFLUENZA [None]
  - RESPIRATORY DISORDER [None]
